FAERS Safety Report 16869497 (Version 7)
Quarter: 2021Q3

REPORT INFORMATION
  Report Type: Spontaneous
  Country: HU (occurrence: HU)
  Receive Date: 20190930
  Receipt Date: 20210813
  Transmission Date: 20211014
  Serious: Yes (Hospitalization, Other)
  Sender: FDA-Public Use
  Company Number: PHHY2019HU226397

PATIENT
  Age: 35 Year
  Sex: Female

DRUGS (3)
  1. AMOXICILLIN,CLAVULANIC ACID [Suspect]
     Active Substance: AMOXICILLIN\CLAVULANIC ACID
     Indication: EVIDENCE BASED TREATMENT
     Dosage: 1 DOSAGE FORM, BID 1 DF, Q12H
     Route: 048
  2. AMOXICILLIN,CLAVULANIC ACID [Suspect]
     Active Substance: AMOXICILLIN\CLAVULANIC ACID
     Indication: PLASMA CELL MASTITIS
     Dosage: 1 DOSAGE FORM, BID (1 DF, Q12H)
     Route: 065
  3. AMOXICILLIN,CLAVULANIC ACID [Suspect]
     Active Substance: AMOXICILLIN\CLAVULANIC ACID
     Indication: HYPERAEMIA

REACTIONS (4)
  - Product use in unapproved indication [Unknown]
  - Breast abscess [Recovered/Resolved]
  - Abscess [Recovered/Resolved]
  - Drug ineffective [Unknown]
